FAERS Safety Report 24251056 (Version 1)
Quarter: 2024Q3

REPORT INFORMATION
  Report Type: Spontaneous
  Country: CN (occurrence: CN)
  Receive Date: 20240826
  Receipt Date: 20240826
  Transmission Date: 20241017
  Serious: Yes (Other)
  Sender: NOVARTIS
  Company Number: CN-002147023-NVSC2024CN171173

PATIENT

DRUGS (1)
  1. OFATUMUMAB [Suspect]
     Active Substance: OFATUMUMAB
     Indication: Product used for unknown indication
     Dosage: UNK (INJECT)
     Route: 065

REACTIONS (5)
  - Multiple sclerosis [Unknown]
  - Muscular weakness [Unknown]
  - Atrophy [Unknown]
  - Skin lesion [Unknown]
  - Drug ineffective [Unknown]
